FAERS Safety Report 15794637 (Version 2)
Quarter: 2019Q1

REPORT INFORMATION
  Report Type: Spontaneous
  Country: US (occurrence: US)
  Receive Date: 20190107
  Receipt Date: 20190123
  Transmission Date: 20190417
  Serious: Yes (Death, Other)
  Sender: FDA-Public Use
  Company Number: US-FRESENIUS KABI-FK201900097

PATIENT
  Age: 82 Year
  Sex: Male
  Weight: 85 kg

DRUGS (8)
  1. BIVALIRUDIN. [Concomitant]
     Active Substance: BIVALIRUDIN
     Indication: ANTICOAGULANT THERAPY
     Dosage: ON 30DEC2018 AT 1409
     Route: 042
  2. HEPARIN SODIUM INJECTION, USP [Suspect]
     Active Substance: HEPARIN SODIUM
     Indication: ANTICOAGULANT THERAPY
     Dosage: AT 1346
     Route: 042
     Dates: start: 20181230, end: 20181230
  3. HEPARIN SODIUM INJECTION, USP [Suspect]
     Active Substance: HEPARIN SODIUM
  4. CANGRELOR [Concomitant]
     Active Substance: CANGRELOR
     Indication: ANTICOAGULANT THERAPY
     Dosage: ON 30DEC2018 AT 1448
     Route: 042
  5. EPTIFIBATIDE. [Concomitant]
     Active Substance: EPTIFIBATIDE
     Indication: ANTICOAGULANT THERAPY
     Dosage: ON 30DEC2018 AT 1409
     Route: 042
  6. HEPARIN SODIUM INJECTION, USP [Suspect]
     Active Substance: HEPARIN SODIUM
  7. HEPARIN SODIUM INJECTION, USP [Suspect]
     Active Substance: HEPARIN SODIUM
  8. TICAGRELOR. [Concomitant]
     Active Substance: TICAGRELOR
     Indication: ANTICOAGULANT THERAPY
     Dosage: ON 30DEC2018 AT 1347
     Route: 042

REACTIONS (4)
  - Tracheal haemorrhage [Fatal]
  - Cardiac arrest [Fatal]
  - Drug effect decreased [Fatal]
  - Coronary artery occlusion [Fatal]

NARRATIVE: CASE EVENT DATE: 20181230
